FAERS Safety Report 7389820-1 (Version None)
Quarter: 2011Q1

REPORT INFORMATION
  Report Type: 
  Country: None (occurrence: None)
  Receive Date: 20110324
  Receipt Date: 20110317
  Transmission Date: 20110831
  Serious: Yes (Death, Other)
  Sender: FDA-Public Use
  Company Number: DKLU1069050

PATIENT
  Age: 7 Year
  Sex: Male

DRUGS (1)
  1. SABRIL [Suspect]
     Indication: PRODUCT USED FOR UNKNOWN INDICATION

REACTIONS (2)
  - PNEUMONIA [None]
  - RESPIRATORY FAILURE [None]
